FAERS Safety Report 21500155 (Version 2)
Quarter: 2022Q4

REPORT INFORMATION
  Report Type: Spontaneous
  Country: CO (occurrence: CO)
  Receive Date: 20221024
  Receipt Date: 20221206
  Transmission Date: 20230113
  Serious: Yes (Other)
  Sender: FDA-Public Use
  Company Number: CO-AMGEN-COLSP2022179532

PATIENT

DRUGS (1)
  1. BEVACIZUMAB [Suspect]
     Active Substance: BEVACIZUMAB
     Indication: Non-small cell lung cancer
     Dosage: UNK
     Route: 065

REACTIONS (11)
  - Hepatotoxicity [Unknown]
  - Renal failure [Unknown]
  - Autoimmune colitis [Unknown]
  - Hypothyroidism [Unknown]
  - Non-small cell lung cancer metastatic [Unknown]
  - Diarrhoea [Unknown]
  - Haemoptysis [Unknown]
  - Skin disorder [Unknown]
  - Myofascial pain syndrome [Unknown]
  - Vomiting [Unknown]
  - Decreased appetite [Unknown]
